FAERS Safety Report 15141216 (Version 1)
Quarter: 2018Q3

REPORT INFORMATION
  Report Type: Spontaneous
  Country: US (occurrence: US)
  Receive Date: 20180713
  Receipt Date: 20180713
  Transmission Date: 20181010
  Serious: No
  Sender: FDA-Public Use
  Company Number: US-DSJP-DSU-2018-125296

PATIENT
  Age: 49 Year
  Sex: Female

DRUGS (2)
  1. DILAUDID [Concomitant]
     Active Substance: HYDROMORPHONE HYDROCHLORIDE
     Indication: PRODUCT USED FOR UNKNOWN INDICATION
     Dosage: UNK
     Route: 065
  2. MORPHABOND ER [Suspect]
     Active Substance: MORPHINE SULFATE
     Indication: CANCER PAIN
     Dosage: 15 MG, ONCE EVERY 12HR
     Route: 048
     Dates: start: 2018, end: 2018

REACTIONS (6)
  - Fatigue [Unknown]
  - Constipation [Unknown]
  - Decreased appetite [Unknown]
  - Personality change [Unknown]
  - Depression [Unknown]
  - Pruritus [Unknown]

NARRATIVE: CASE EVENT DATE: 2018
